FAERS Safety Report 10067115 (Version 2)
Quarter: 2014Q2

REPORT INFORMATION
  Report Type: Spontaneous
  Country: JP (occurrence: JP)
  Receive Date: 20140409
  Receipt Date: 20140522
  Transmission Date: 20141212
  Serious: Yes (Hospitalization)
  Sender: FDA-Public Use
  Company Number: JP-ASTRAZENECA-2014SE23304

PATIENT
  Sex: 0

DRUGS (1)
  1. TENORMIN [Suspect]
     Dosage: 25, OVERDOSED
     Route: 048

REACTIONS (2)
  - Overdose [Unknown]
  - Blood pressure decreased [Recovered/Resolved]
